FAERS Safety Report 8989699 (Version 1)
Quarter: 2012Q4

REPORT INFORMATION
  Report Type: 
  Country: US (occurrence: US)
  Receive Date: 20121227
  Receipt Date: 20121227
  Transmission Date: 20130627
  Serious: No
  Sender: FDA-Public Use
  Company Number: US-009507513-1212USA009757

PATIENT
  Sex: Male

DRUGS (2)
  1. SINGULAIR [Suspect]
     Indication: ASTHMA
     Dosage: total daily dose 5 mg
     Route: 048
  2. SINGULAIR [Suspect]
     Indication: HYPERSENSITIVITY

REACTIONS (1)
  - Aggression [Unknown]
